FAERS Safety Report 6332369-5 (Version None)
Quarter: 2009Q3

REPORT INFORMATION
  Report Type: 
  Country: None (occurrence: None)
  Receive Date: 20090828
  Receipt Date: 20090825
  Transmission Date: 20100115
  Serious: Yes (Death, Hospitalization)
  Sender: FDA-Public Use
  Company Number: JP-ELI_LILLY_AND_COMPANY-JP200908004596

PATIENT
  Sex: Male
  Weight: 43 kg

DRUGS (13)
  1. ALIMTA [Suspect]
     Indication: NON-SMALL CELL LUNG CANCER STAGE IV
     Dosage: 730 MG, OTHER
     Route: 042
     Dates: start: 20090806, end: 20090806
  2. CISPLATIN [Concomitant]
     Indication: NON-SMALL CELL LUNG CANCER STAGE IV
     Dosage: 110 MG, OTHER
     Route: 042
     Dates: start: 20090806, end: 20090806
  3. FOLIAMIN [Concomitant]
     Dosage: 0.5 MG, DAILY (1/D)
     Route: 048
     Dates: start: 20090730
  4. CYANOCOBALAMIN [Concomitant]
     Dosage: 1 MG, DAILY (1/D)
     Route: 030
     Dates: start: 20090730, end: 20090730
  5. DECADRON /00016002/ [Concomitant]
     Dosage: 12 MG, DAILY (1/D)
     Route: 042
     Dates: start: 20090806, end: 20090806
  6. DECADRON /00016002/ [Concomitant]
     Dosage: 8 MG, DAILY (1/D)
     Route: 042
     Dates: start: 20090807, end: 20090808
  7. DECADRON /00016002/ [Concomitant]
     Dosage: 4 MG, DAILY (1/D)
     Route: 042
     Dates: start: 20090809, end: 20090810
  8. GRANISETRON HCL [Concomitant]
     Dosage: 3 MG, DAILY (1/D)
     Route: 042
     Dates: start: 20090806, end: 20090806
  9. ZOFRAN ZYDIS [Concomitant]
     Dosage: 4 MG, DAILY (1/D)
     Route: 048
     Dates: start: 20090807, end: 20090810
  10. OLMETEC [Concomitant]
     Dosage: 20 MG, DAILY (1/D)
  11. FAMOTIDINE [Concomitant]
     Dosage: 20 MG, DAILY (1/D)
  12. AMBROSAN [Concomitant]
     Dosage: 45 MG, DAILY (1/D)
  13. MUCOSTA [Concomitant]
     Dosage: 100 MG, 3/D

REACTIONS (3)
  - ACUTE RESPIRATORY FAILURE [None]
  - PLATELET COUNT DECREASED [None]
  - WHITE BLOOD CELL COUNT DECREASED [None]
